FAERS Safety Report 9574694 (Version 2)
Quarter: 2013Q4

REPORT INFORMATION
  Report Type: Report from Study
  Country: FR (occurrence: FR)
  Receive Date: 20131001
  Receipt Date: 20131025
  Transmission Date: 20140711
  Serious: Yes (Other)
  Sender: FDA-Public Use
  Company Number: FR-BRISTOL-MYERS SQUIBB COMPANY-19417765

PATIENT
  Age: 72 Year
  Sex: Male

DRUGS (6)
  1. TAXOL [Suspect]
     Indication: NON-SMALL CELL LUNG CANCER
     Dosage: MOST RECENT DOSE:07/AUG/2013 (300 MG,L IN 21 D)
     Route: 042
     Dates: start: 20130807
  2. CARBOPLATIN [Suspect]
     Indication: NON-SMALL CELL LUNG CANCER
     Dosage: MOST RECENT DOSE:07/AUG/2013 (510 MG,L IN 21 D)
     Route: 042
     Dates: start: 20130807
  3. PREDNISOLONE [Concomitant]
     Indication: ARTHRALGIA
     Route: 048
     Dates: start: 20130814, end: 20130816
  4. PARACETAMOL [Concomitant]
     Indication: ARTHRALGIA
     Route: 048
     Dates: start: 20130810, end: 20130814
  5. AERIUS [Concomitant]
     Indication: DERMATITIS ALLERGIC
     Route: 048
     Dates: start: 20130815
  6. GRANOCYTE [Concomitant]
     Indication: PROPHYLAXIS
     Route: 058
     Dates: start: 20130828, end: 20130901

REACTIONS (1)
  - Rash [Recovered/Resolved]
